FAERS Safety Report 8390988-9 (Version None)
Quarter: 2012Q2

REPORT INFORMATION
  Report Type: 
  Country: None (occurrence: None)
  Receive Date: 20120529
  Receipt Date: 20120515
  Transmission Date: 20120825
  Serious: Yes (Death)
  Sender: FDA-Public Use
  Company Number: NL-JNJFOC-20120513800

PATIENT
  Sex: Female

DRUGS (2)
  1. HORMONE THERAPY [Concomitant]
     Indication: BREAST CANCER METASTATIC
     Route: 065
  2. DOXORUBICIN HCL [Suspect]
     Indication: BREAST CANCER METASTATIC
     Route: 042

REACTIONS (1)
  - DEATH [None]
